FAERS Safety Report 4877039-5 (Version None)
Quarter: 2005Q4

REPORT INFORMATION
  Report Type: 
  Country: None (occurrence: None)
  Receive Date: 20051206
  Receipt Date: 20050816
  Transmission Date: 20060501
  Serious: No
  Sender: FDA-Public Use
  Company Number: USA0508105629

PATIENT
  Age: 72 Year
  Sex: Female

DRUGS (1)
  1. CYMBALTA [Suspect]
     Dosage: 30 MG
     Dates: start: 20050616

REACTIONS (3)
  - APHTHOUS STOMATITIS [None]
  - MASTICATION DISORDER [None]
  - ORAL PAIN [None]
